FAERS Safety Report 8173648-9 (Version None)
Quarter: 2012Q1

REPORT INFORMATION
  Report Type: 
  Country: None (occurrence: None)
  Receive Date: 20120229
  Receipt Date: 20120225
  Transmission Date: 20120608
  Serious: Yes (Life-Threatening, Hospitalization)
  Sender: FDA-Public Use
  Company Number: US-BAYER-2011-081421

PATIENT
  Age: 26 Year
  Sex: Female
  Weight: 61.224 kg

DRUGS (6)
  1. LEXAPRO [Concomitant]
     Indication: DEPRESSION
  2. ERY-TAB [Concomitant]
     Dosage: 250 MG, UNK
     Route: 048
     Dates: start: 20070321
  3. ALPRAZOLAM [Concomitant]
     Dosage: 0.25 MG, UNK
     Route: 048
     Dates: start: 20070324
  4. LEXAPRO [Concomitant]
     Indication: ANXIETY
     Dosage: UNK
     Route: 048
     Dates: start: 20070301
  5. YASMIN [Suspect]
     Indication: CONTRACEPTION
     Dosage: UNK
     Dates: start: 20050901, end: 20070301
  6. AMOXICILLIN [Concomitant]
     Dosage: 500 MG, UNK
     Route: 048
     Dates: start: 20070228

REACTIONS (8)
  - FEAR [None]
  - EMOTIONAL DISTRESS [None]
  - PAIN [None]
  - ANXIETY [None]
  - DEEP VEIN THROMBOSIS [None]
  - PULMONARY EMBOLISM [None]
  - ANHEDONIA [None]
  - DEPRESSION [None]
